FAERS Safety Report 25981916 (Version 1)
Quarter: 2025Q4

REPORT INFORMATION
  Report Type: Spontaneous
  Country: JP (occurrence: JP)
  Receive Date: 20251031
  Receipt Date: 20251031
  Transmission Date: 20260118
  Serious: Yes (Death, Other)
  Sender: Teyro Labs
  Company Number: JP-TEYRO-2025-TY-000889

PATIENT

DRUGS (5)
  1. CARBOPLATIN [Suspect]
     Active Substance: CARBOPLATIN
     Indication: Non-small cell lung cancer metastatic
     Dosage: AUC 5 MG/ML/MIN
     Route: 065
  2. AFATINIB [Suspect]
     Active Substance: AFATINIB
     Indication: Non-small cell lung cancer metastatic
     Dosage: DAILY
     Route: 065
  3. AFATINIB [Suspect]
     Active Substance: AFATINIB
     Dosage: MAINTENANCE
     Route: 065
  4. PEMETREXED [Suspect]
     Active Substance: PEMETREXED
     Indication: Non-small cell lung cancer metastatic
     Dosage: EVERY 3 WEEKS
     Route: 065
  5. PEMETREXED [Suspect]
     Active Substance: PEMETREXED
     Dosage: MAINTENANCE
     Route: 065

REACTIONS (2)
  - Interstitial lung disease [Fatal]
  - Off label use [Unknown]
